FAERS Safety Report 5846666-0 (Version None)
Quarter: 2008Q3

REPORT INFORMATION
  Report Type: 
  Country: None (occurrence: None)
  Receive Date: 20080815
  Receipt Date: 20080807
  Transmission Date: 20090109
  Serious: Yes (Hospitalization)
  Sender: FDA-Public Use
  Company Number: B0532285A

PATIENT
  Age: 57 Year
  Sex: Female

DRUGS (6)
  1. NITROGLYCERIN [Suspect]
     Indication: APLASIA
     Dosage: 5.5G PER DAY
     Route: 042
     Dates: start: 20080228, end: 20080307
  2. VFEND [Suspect]
     Indication: APLASIA
     Route: 042
     Dates: start: 20080217, end: 20080311
  3. PYOSTACINE [Suspect]
     Indication: APLASIA
     Dosage: 1G THREE TIMES PER DAY
     Route: 048
     Dates: start: 20080223, end: 20080308
  4. TRIFLUCAN [Concomitant]
     Indication: APLASIA
     Route: 065
     Dates: start: 20080219, end: 20080222
  5. GLEEVEC [Concomitant]
     Indication: CHEMOTHERAPY
     Route: 065
     Dates: start: 20080212, end: 20080212
  6. NEULASTA [Concomitant]
     Indication: CHEMOTHERAPY
     Route: 065
     Dates: start: 20080212, end: 20080212

REACTIONS (10)
  - ANURIA [None]
  - CHOLESTASIS [None]
  - CONFUSIONAL STATE [None]
  - DRUG TOXICITY [None]
  - HEPATOCELLULAR INJURY [None]
  - HYPERSENSITIVITY [None]
  - LIVER DISORDER [None]
  - RENAL FAILURE ACUTE [None]
  - RENAL TUBULAR DISORDER [None]
  - SOMNOLENCE [None]
